FAERS Safety Report 20098654 (Version 1)
Quarter: 2021Q4

REPORT INFORMATION
  Report Type: Spontaneous
  Country: US (occurrence: US)
  Receive Date: 20211122
  Receipt Date: 20211122
  Transmission Date: 20220304
  Serious: No
  Sender: FDA-Public Use
  Company Number: US-BRACCO-2021US03428

PATIENT
  Age: 80 Year
  Sex: Male

DRUGS (6)
  1. LUMASON [Suspect]
     Active Substance: SULFUR HEXAFLUORIDE
     Indication: Stress echocardiogram
     Dosage: 3.5 ML, SINGLE
     Dates: start: 20210806, end: 20210806
  2. LUMASON [Suspect]
     Active Substance: SULFUR HEXAFLUORIDE
     Indication: Stress echocardiogram
     Dosage: 3.5 ML, SINGLE
     Dates: start: 20210806, end: 20210806
  3. LUMASON [Suspect]
     Active Substance: SULFUR HEXAFLUORIDE
     Indication: Stress echocardiogram
     Dosage: 3.5 ML, SINGLE
     Dates: start: 20210806, end: 20210806
  4. DOBUTAMINE [Suspect]
     Active Substance: DOBUTAMINE HYDROCHLORIDE
     Indication: Stress echocardiogram
     Dosage: UNK
     Dates: start: 20210806, end: 20210806
  5. ATROPINE [Suspect]
     Active Substance: ATROPINE
     Dosage: UNK
     Dates: start: 20210806, end: 20210806
  6. METOPROLOL [Concomitant]
     Active Substance: METOPROLOL

REACTIONS (2)
  - Dyskinesia [Recovered/Resolved]
  - Dysarthria [Recovered/Resolved]

NARRATIVE: CASE EVENT DATE: 20210806
